FAERS Safety Report 6189301-7 (Version None)
Quarter: 2009Q2

REPORT INFORMATION
  Report Type: 
  Country: None (occurrence: None)
  Receive Date: 20090512
  Receipt Date: 20090504
  Transmission Date: 20091009
  Serious: Yes (Death, Hospitalization)
  Sender: FDA-Public Use
  Company Number: MPS1-1000215

PATIENT
  Age: 15 Month
  Sex: Male
  Weight: 10 kg

DRUGS (5)
  1. ALDURAZYME [Suspect]
     Indication: MUCOPOLYSACCHARIDOSIS
     Dosage: 5.8 MG, 1X/2, INTRAVENOUS, INTRATRACHEAL
     Route: 042
     Dates: end: 20090211
  2. ALDURAZYME [Suspect]
     Indication: MUCOPOLYSACCHARIDOSIS
     Dosage: 5.8 MG, 1X/2, INTRAVENOUS, INTRATRACHEAL
     Route: 042
     Dates: start: 20081230
  3. ACETAMINOPHEN [Concomitant]
  4. BENADRYL [Concomitant]
  5. HYDROCORTISONE [Concomitant]

REACTIONS (6)
  - CARDIAC FAILURE [None]
  - MULTI-ORGAN FAILURE [None]
  - POST PROCEDURAL COMPLICATION [None]
  - RESPIRATORY FAILURE [None]
  - STEM CELL TRANSPLANT [None]
  - VENOOCCLUSIVE DISEASE [None]
